FAERS Safety Report 10179278 (Version 1)
Quarter: 2014Q2

REPORT INFORMATION
  Report Type: Spontaneous
  Country: US (occurrence: None)
  Receive Date: 20140416
  Receipt Date: 20140416
  Transmission Date: 20141212
  Serious: Yes (Other)
  Sender: FDA-Public Use
  Company Number: 163-POMAL-13123081

PATIENT
  Age: 62 Year
  Sex: Female
  Weight: 67.1 kg

DRUGS (8)
  1. POMALYST [Suspect]
     Indication: PLASMA CELL MYELOMA
     Dosage: 1 IN 1 D
     Route: 048
     Dates: start: 201310
  2. ACYCLOVIR (ACICLOVIR) (ACICLOVIR) [Concomitant]
  3. FOLIC ACID [Concomitant]
  4. KLOR-CON M20 (POTASSIUM CHLORIDE) [Concomitant]
  5. CALCIUM + VITAMIN D (LEKOVIT CA) [Concomitant]
  6. MAGNESIUM OXIDE [Concomitant]
  7. OMEPRAZOLE [Concomitant]
  8. SUPER THERAVITE - M [Concomitant]

REACTIONS (2)
  - Rhinorrhoea [None]
  - Cough [None]
